FAERS Safety Report 7088600-4 (Version None)
Quarter: 2010Q4

REPORT INFORMATION
  Report Type: 
  Country: None (occurrence: None)
  Receive Date: 20101028
  Receipt Date: 20101019
  Transmission Date: 20110411
  Serious: Yes (Hospitalization)
  Sender: FDA-Public Use
  Company Number: UTC-001680

PATIENT
  Age: 37 Year
  Sex: Female
  Weight: 86 kg

DRUGS (2)
  1. REMODULIN [Suspect]
     Indication: PULMONARY HYPERTENSION
     Dosage: 27.36 UG/KG (0.019 UG/KG,1 IN 1 MIN),SUBCUTANEOUS
     Route: 058
     Dates: start: 20100915
  2. DIURETICS(DIURETICS) [Concomitant]

REACTIONS (1)
  - HAEMATEMESIS [None]
